FAERS Safety Report 8721132 (Version 3)
Quarter: 2013Q2

REPORT INFORMATION
  Report Type: Spontaneous
  Country: US (occurrence: US)
  Receive Date: 20120813
  Receipt Date: 20130507
  Transmission Date: 20140414
  Serious: No
  Sender: FDA-Public Use
  Company Number: US-PFIZER INC-2012194671

PATIENT
  Age: 42 Year
  Sex: Female
  Weight: 94.79 kg

DRUGS (3)
  1. LYRICA [Suspect]
     Indication: FIBROMYALGIA
     Dosage: UNK
  2. LYRICA [Suspect]
     Dosage: 150 MG, UNK
     Dates: end: 201304
  3. TRAMADOL [Concomitant]
     Indication: FIBROMYALGIA
     Dosage: 50 MG, 3X/DAY

REACTIONS (8)
  - Drug withdrawal syndrome [Unknown]
  - Malaise [Unknown]
  - Headache [Unknown]
  - Abdominal discomfort [Unknown]
  - Body temperature fluctuation [Unknown]
  - Insomnia [Unknown]
  - Irritability [Unknown]
  - Discomfort [Unknown]
